FAERS Safety Report 11627582 (Version 2)
Quarter: 2015Q4

REPORT INFORMATION
  Report Type: Spontaneous
  Country: US (occurrence: US)
  Receive Date: 20151014
  Receipt Date: 20151106
  Transmission Date: 20160304
  Serious: Yes (Other)
  Sender: FDA-Public Use
  Company Number: US-JNJCP-30000308146

PATIENT
  Age: 26 Year
  Sex: Female
  Weight: 102 kg

DRUGS (1)
  1. AVEENO CLEAR COMPLEXION DAILY CLEANSING [Suspect]
     Active Substance: SALICYLIC ACID
     Indication: REMOVAL OF INERT MATTER FROM SKIN OR SUBCUTANEOUS TISSUE
     Dosage: ONE PAD, ONCE A DAY
     Route: 061
     Dates: start: 20150927, end: 20150928

REACTIONS (3)
  - Hypersensitivity [None]
  - Application site swelling [Recovered/Resolved]
  - Application site pruritus [Recovered/Resolved]

NARRATIVE: CASE EVENT DATE: 20150928
